FAERS Safety Report 5163647-3 (Version None)
Quarter: 2006Q4

REPORT INFORMATION
  Report Type: 
  Country: None (occurrence: None)
  Receive Date: 20061124
  Receipt Date: 20061113
  Transmission Date: 20070319
  Serious: Yes (Hospitalization, Other)
  Sender: FDA-Public Use
  Company Number: 2006142147

PATIENT
  Age: 75 Year
  Sex: Female

DRUGS (1)
  1. LYRICA [Suspect]
     Dates: end: 20060901

REACTIONS (4)
  - BRADYCARDIA [None]
  - DYSARTHRIA [None]
  - GAIT DISTURBANCE [None]
  - RENAL IMPAIRMENT [None]
